FAERS Safety Report 8761142 (Version 1)
Quarter: 2012Q4

REPORT INFORMATION
  Report Type: 
  Country: US (occurrence: US)
  Receive Date: 20120830
  Receipt Date: 20120830
  Transmission Date: 20130627
  Serious: No
  Sender: FDA-Public Use
  Company Number: US-JNJFOC-20120809878

PATIENT
  Sex: Male
  Weight: 77.11 kg

DRUGS (6)
  1. INVEGA SUSTENNA [Suspect]
     Indication: PRODUCT USED FOR UNKNOWN INDICATION
     Route: 030
     Dates: start: 2011
  2. HALDOL [Concomitant]
     Indication: HALLUCINATION, AUDITORY
     Route: 065
     Dates: end: 2011
  3. PROZAC [Concomitant]
     Indication: DEPRESSION
     Route: 048
  4. COGENTIN [Concomitant]
     Route: 048
  5. ABILIFY [Concomitant]
     Indication: HALLUCINATION, AUDITORY
     Route: 048
     Dates: start: 2011
  6. VITAMIN [Concomitant]
     Route: 065

REACTIONS (2)
  - Dizziness [Not Recovered/Not Resolved]
  - Abdominal pain upper [Not Recovered/Not Resolved]
